FAERS Safety Report 10301883 (Version 1)
Quarter: 2014Q3

REPORT INFORMATION
  Report Type: Spontaneous
  Country: FR (occurrence: FR)
  Receive Date: 20140714
  Receipt Date: 20140714
  Transmission Date: 20150326
  Serious: Yes (Congenital Anomaly)
  Sender: FDA-Public Use
  Company Number: FR-TEVA-492754ISR

PATIENT
  Age: 24 Year
  Sex: Female

DRUGS (8)
  1. PAROXETINE TEVA 20 MG [Suspect]
     Active Substance: PAROXETINE\PAROXETINE HYDROCHLORIDE
     Dosage: 20 MILLIGRAM DAILY; SINCE THE BEGINNING OF PREGNANCY
  2. LEPTICUR PARK 5 MG [Suspect]
     Active Substance: TROPATEPINE HYDROCHLORIDE
     Dosage: 10 MILLIGRAM DAILY; SINCE THE BEGINNING OF PREGNANCY
     Route: 048
  3. DAFALGAN [Suspect]
     Active Substance: ACETAMINOPHEN
     Indication: PAIN
     Dosage: UNTIL 6 MAXIMUM PER DAY
  4. LYSANXIA [Suspect]
     Active Substance: PRAZEPAM
     Dosage: 60 MILLIGRAM DAILY; SINCE THE BEGINNING OF PREGNANCY
     Route: 048
  5. LARGACTIL 25 MG [Suspect]
     Active Substance: CHLORPROMAZINE
     Dosage: 75 MILLIGRAM DAILY; SINCE THE BEGINNING OF PREGNANCY
     Route: 048
  6. DAFALGAN [Suspect]
     Active Substance: ACETAMINOPHEN
     Indication: PYREXIA
  7. SULFARLEM S 25 MG [Suspect]
     Active Substance: ANETHOLTRITHION
     Dosage: 150 MILLIGRAM DAILY; SINCE THE BEGINNING OF PREGNANCY
     Route: 048
  8. RIVOTRIL [Suspect]
     Active Substance: CLONAZEPAM
     Dosage: SINCE THE BEGINNING OF PREGNANCY
     Route: 048

REACTIONS (3)
  - Congenital bladder anomaly [Not Recovered/Not Resolved]
  - Caudal regression syndrome [Not Recovered/Not Resolved]
  - Maternal drugs affecting foetus [None]

NARRATIVE: CASE EVENT DATE: 20071024
